FAERS Safety Report 20875197 (Version 1)
Quarter: 2022Q2

REPORT INFORMATION
  Report Type: Spontaneous
  Country: BA (occurrence: BA)
  Receive Date: 20220526
  Receipt Date: 20220526
  Transmission Date: 20220721
  Serious: Yes (Hospitalization, Other)
  Sender: FDA-Public Use
  Company Number: BA-SUN PHARMACEUTICAL INDUSTRIES LTD-2022RR-338100

PATIENT
  Age: 29 Year
  Sex: Male

DRUGS (7)
  1. RISPERIDONE [Suspect]
     Active Substance: RISPERIDONE
     Indication: Psychotic disorder
     Dosage: 2 MILLIGRAM, BID
     Route: 065
  2. RISPERIDONE [Suspect]
     Active Substance: RISPERIDONE
     Dosage: 3 MILLIGRAM, BID
     Route: 065
  3. OLANZAPINE [Suspect]
     Active Substance: OLANZAPINE
     Indication: Schizophrenia
     Dosage: 20 MILLIGRAM, DAILY
     Route: 065
  4. HALOPERIDOL [Suspect]
     Active Substance: HALOPERIDOL
     Indication: Schizophrenia
     Dosage: 15 MILLIGRAM
     Route: 065
  5. CLOZAPINE [Suspect]
     Active Substance: CLOZAPINE
     Indication: Sedative therapy
     Dosage: 25 MILLIGRAM, BID
     Route: 065
  6. CLOZAPINE [Suspect]
     Active Substance: CLOZAPINE
     Dosage: 100 MILLIGRAM, BID
     Route: 065
  7. PROMAZINE [Suspect]
     Active Substance: PROMAZINE
     Indication: Schizophrenia
     Dosage: 50 MILLIGRAM, BID
     Route: 065

REACTIONS (2)
  - Drug ineffective [Unknown]
  - Salivary hypersecretion [Unknown]
